FAERS Safety Report 8234790-7 (Version None)
Quarter: 2012Q1

REPORT INFORMATION
  Report Type: 
  Country: None (occurrence: None)
  Receive Date: 20120321
  Receipt Date: 20120306
  Transmission Date: 20120608
  Serious: Yes (Other)
  Sender: FDA-Public Use
  Company Number: 2012SP012590

PATIENT
  Age: 53 Year
  Sex: Male

DRUGS (6)
  1. RIBAVIRIN [Suspect]
     Indication: LIVER DISORDER
     Dates: start: 20111129, end: 20120301
  2. RIBAVIRIN [Suspect]
     Indication: HEPATITIS C
     Dates: start: 20111129, end: 20120301
  3. VICTRELIS [Suspect]
     Indication: LIVER DISORDER
     Dates: start: 20111201, end: 20120301
  4. VICTRELIS [Suspect]
     Indication: HEPATITIS C
     Dates: start: 20111201, end: 20120301
  5. PEGINTERFERON ALFA-2B [Suspect]
     Indication: LIVER DISORDER
     Dates: start: 20111129, end: 20120301
  6. PEGINTERFERON ALFA-2B [Suspect]
     Indication: HEPATITIS C
     Dates: start: 20111129, end: 20120301

REACTIONS (2)
  - FLUID RETENTION [None]
  - ANAEMIA [None]
